FAERS Safety Report 16619452 (Version 1)
Quarter: 2019Q3

REPORT INFORMATION
  Report Type: Spontaneous
  Country: DE (occurrence: DE)
  Receive Date: 20190723
  Receipt Date: 20190723
  Transmission Date: 20191004
  Serious: Yes (Hospitalization)
  Sender: FDA-Public Use
  Company Number: DE-PFIZER INC-2019316186

PATIENT
  Age: 57 Year
  Sex: Male

DRUGS (4)
  1. DOXORUBICIN HCL [Suspect]
     Active Substance: DOXORUBICIN HYDROCHLORIDE
     Dosage: NK MG, NK; FIRST GIFT ON 14/11/2017
  2. CYCLOPHOSPHAMID [Suspect]
     Active Substance: CYCLOPHOSPHAMIDE
     Dosage: NK MG, NK; FIRST GIFT ON 14/11/2017
  3. CISPLATIN. [Suspect]
     Active Substance: CISPLATIN
     Dosage: NK MG, NK; FIRST GIFT ON 14/11/2017
  4. MCP [Concomitant]
     Active Substance: METOCLOPRAMIDE HYDROCHLORIDE
     Dosage: NK MG, NK, DROPS

REACTIONS (6)
  - Polyuria [Unknown]
  - Decreased appetite [Unknown]
  - Nausea [Unknown]
  - Dizziness [Unknown]
  - General physical health deterioration [Unknown]
  - Hypotension [Unknown]
